FAERS Safety Report 7045827-5 (Version None)
Quarter: 2010Q4

REPORT INFORMATION
  Report Type: 
  Country: None (occurrence: None)
  Receive Date: 20101014
  Receipt Date: 20101007
  Transmission Date: 20110411
  Serious: Yes (Other)
  Sender: FDA-Public Use
  Company Number: AR-ROXANE LABORATORIES, INC.-2010-RO-01328RO

PATIENT
  Age: 10 Year
  Sex: Male

DRUGS (3)
  1. LEVETIRACETAM [Suspect]
     Indication: MYOCLONIC EPILEPSY
     Dosage: 1000 MG
  2. TOPIRAMATE [Suspect]
     Indication: MYOCLONIC EPILEPSY
  3. CLOBAZAM [Suspect]
     Indication: MYOCLONIC EPILEPSY

REACTIONS (3)
  - CONDITION AGGRAVATED [None]
  - ELECTROENCEPHALOGRAM ABNORMAL [None]
  - MYOCLONUS [None]
